FAERS Safety Report 4437843-4 (Version None)
Quarter: 2004Q3

REPORT INFORMATION
  Report Type: 
  Country: None (occurrence: None)
  Receive Date: 20040831
  Receipt Date: 20040705
  Transmission Date: 20050211
  Serious: Yes (Disabling, Other)
  Sender: FDA-Public Use
  Company Number: 200411589DE

PATIENT
  Age: 54 Year
  Sex: Female
  Weight: 84 kg

DRUGS (5)
  1. KETEK [Suspect]
     Indication: RESPIRATORY TRACT INFECTION BACTERIAL
     Route: 048
     Dates: start: 20040309, end: 20040311
  2. KETEK [Suspect]
     Indication: SINOBRONCHITIS
     Route: 048
     Dates: start: 20040309, end: 20040311
  3. BECLOMETASON [Concomitant]
     Indication: BRONCHITIS
     Route: 055
     Dates: start: 20040218, end: 20040311
  4. INSUMAN BASAL [Concomitant]
     Indication: DIABETES MELLITUS INSULIN-DEPENDENT
     Dosage: DOSE: 0-0-18
     Route: 058
  5. INSULIN [Concomitant]
     Indication: DIABETES MELLITUS INSULIN-DEPENDENT
     Dosage: DOSE: 12-16-12
     Route: 058

REACTIONS (6)
  - DYSAESTHESIA [None]
  - DYSGEUSIA [None]
  - PARAESTHESIA [None]
  - PAROSMIA [None]
  - RADICULITIS [None]
  - SPINAL DISORDER [None]
